APPROVED DRUG PRODUCT: AZACITIDINE
Active Ingredient: AZACITIDINE
Strength: 100MG/VIAL
Dosage Form/Route: POWDER;INTRAVENOUS, SUBCUTANEOUS
Application: A204949 | Product #001
Applicant: PHARMOBEDIENT CONSULTING LLC
Approved: Apr 28, 2016 | RLD: No | RS: No | Type: DISCN